FAERS Safety Report 6309456-0 (Version None)
Quarter: 2009Q3

REPORT INFORMATION
  Report Type: 
  Country: None (occurrence: None)
  Receive Date: 20090814
  Receipt Date: 20090804
  Transmission Date: 20100115
  Serious: Yes (Hospitalization)
  Sender: FDA-Public Use
  Company Number: TW-JNJFOC-20090802272

PATIENT
  Age: 18 Year
  Sex: Male

DRUGS (8)
  1. HALDOL [Suspect]
     Indication: AGITATION
     Route: 042
  2. ZOTEPIN [Suspect]
     Indication: PSYCHOTIC DISORDER
     Route: 065
  3. RISPERIDONE [Concomitant]
     Indication: DRUG USE FOR UNKNOWN INDICATION
     Route: 065
  4. ALPRAZOLAM [Concomitant]
     Route: 065
  5. CLONAZEPAM [Concomitant]
     Route: 065
  6. CHLORPROMAZINE [Concomitant]
     Route: 065
  7. TRIHEXYPHENIDYL [Concomitant]
     Route: 065
  8. PROPRANOLOL [Concomitant]
     Route: 065

REACTIONS (10)
  - AGITATION [None]
  - BACTERIA BLOOD IDENTIFIED [None]
  - CATATONIA [None]
  - ELECTROENCEPHALOGRAM ABNORMAL [None]
  - EXTRAPYRAMIDAL DISORDER [None]
  - MUTISM [None]
  - NEUROLEPTIC MALIGNANT SYNDROME [None]
  - PNEUMONIA ASPIRATION [None]
  - PSYCHOTIC DISORDER [None]
  - URINARY RETENTION [None]
